FAERS Safety Report 7088937-9 (Version None)
Quarter: 2010Q4

REPORT INFORMATION
  Report Type: 
  Country: None (occurrence: None)
  Receive Date: 20101029
  Receipt Date: 20101019
  Transmission Date: 20110411
  Serious: Yes (Disabling)
  Sender: FDA-Public Use
  Company Number: OSCN-NO-0810S-0551

PATIENT
  Age: 65 Year
  Sex: Female

DRUGS (1)
  1. OMNISCAN [Suspect]
     Indication: SCAN WITH CONTRAST
     Dosage: 30 ML, SINGLE DOSE, I.V.
     Route: 042
     Dates: start: 20040722, end: 20040722

REACTIONS (12)
  - DIABETIC NEPHROPATHY [None]
  - GAIT DISTURBANCE [None]
  - MUSCLE CONTRACTURE [None]
  - NEPHROGENIC SYSTEMIC FIBROSIS [None]
  - OCULAR HYPERAEMIA [None]
  - OEDEMA PERIPHERAL [None]
  - PANNICULITIS [None]
  - PERIORBITAL OEDEMA [None]
  - SKIN DISORDER [None]
  - SKIN FIBROSIS [None]
  - SKIN HYPERTROPHY [None]
  - SKIN TIGHTNESS [None]
